FAERS Safety Report 14222122 (Version 1)
Quarter: 2017Q4

REPORT INFORMATION
  Report Type: Report from Study
  Country: None (occurrence: IL)
  Receive Date: 20171124
  Receipt Date: 20171124
  Transmission Date: 20180321
  Serious: Yes (Other)
  Sender: FDA-Public Use
  Company Number: IL-ABBVIE-17K-082-2015837-00

PATIENT
  Age: 79 Year
  Sex: Female

DRUGS (1)
  1. HUMIRA [Suspect]
     Active Substance: ADALIMUMAB
     Indication: PSORIASIS
     Route: 058
     Dates: start: 20170524, end: 2017

REACTIONS (5)
  - Renal impairment [Recovering/Resolving]
  - Wound [Recovering/Resolving]
  - Atrial fibrillation [Not Recovered/Not Resolved]
  - Thyroid mass [Unknown]
  - Abscess oral [Recovered/Resolved]

NARRATIVE: CASE EVENT DATE: 2017
